FAERS Safety Report 12259803 (Version 2)
Quarter: 2016Q2

REPORT INFORMATION
  Report Type: Spontaneous
  Country: JP (occurrence: JP)
  Receive Date: 20160412
  Receipt Date: 20160418
  Transmission Date: 20160815
  Serious: Yes (Hospitalization, Other)
  Sender: FDA-Public Use
  Company Number: JP-MDT-ADR-2016-00657

PATIENT
  Sex: Male

DRUGS (2)
  1. GABALON [Suspect]
     Active Substance: BACLOFEN
     Dosage: 50MCG/DAY
     Route: 037
     Dates: start: 20090707
  2. GABALON [Suspect]
     Active Substance: BACLOFEN
     Dosage: 230MCG/DAY
     Route: 037

REACTIONS (5)
  - Muscle spasticity [Not Recovered/Not Resolved]
  - Fall [Not Recovered/Not Resolved]
  - Thoracic vertebral fracture [Not Recovered/Not Resolved]
  - Drug withdrawal syndrome [Not Recovered/Not Resolved]
  - Muscle spasms [Not Recovered/Not Resolved]

NARRATIVE: CASE EVENT DATE: 20160327
